FAERS Safety Report 9911575 (Version 2)
Quarter: 2014Q2

REPORT INFORMATION
  Report Type: Report from Study
  Country: BR (occurrence: BR)
  Receive Date: 20140219
  Receipt Date: 20140424
  Transmission Date: 20141212
  Serious: Yes (Death)
  Sender: FDA-Public Use
  Company Number: PHHY2014BR019927

PATIENT
  Sex: Female
  Weight: 40 kg

DRUGS (7)
  1. EXELON [Suspect]
     Indication: DEMENTIA ALZHEIMER^S TYPE
     Dosage: UNK UKN, BID (1.5 MG)
     Route: 048
  2. EXELON [Suspect]
     Dosage: UNK UKN, BID (3 MG)
     Route: 048
  3. CAL + D [Concomitant]
     Indication: OSTEOPOROSIS
     Dosage: UNK UKN, UNK
  4. OMEPRAZOLE [Concomitant]
     Indication: GASTRIC DISORDER
     Dosage: UNK UKN, UNK
  5. CYCLOBENZAPRINE [Concomitant]
     Dosage: UNK UKN, UNK
  6. AAS [Concomitant]
     Indication: CARDIOVASCULAR EVENT PROPHYLAXIS
     Dosage: UNK UKN, UNK
  7. ENDOFOLIN [Concomitant]
     Dosage: UNK UKN, UNK

REACTIONS (6)
  - Death [Fatal]
  - Gastrooesophageal reflux disease [Unknown]
  - Incontinence [Unknown]
  - Dysphagia [Unknown]
  - Choking [Unknown]
  - Underweight [Unknown]
